FAERS Safety Report 25245385 (Version 1)
Quarter: 2025Q2

REPORT INFORMATION
  Report Type: Spontaneous
  Country: SI (occurrence: SI)
  Receive Date: 20250428
  Receipt Date: 20250428
  Transmission Date: 20250717
  Serious: Yes (Other)
  Sender: AMGEN
  Company Number: SI-AMGEN-SVNSP2025081779

PATIENT
  Age: 73 Year
  Sex: Female

DRUGS (6)
  1. PROLIA [Suspect]
     Active Substance: DENOSUMAB
     Indication: Osteoporosis
     Route: 065
     Dates: start: 201111, end: 201304
  2. PROLIA [Suspect]
     Active Substance: DENOSUMAB
     Route: 065
     Dates: start: 2016
  3. CIPRALEX [Concomitant]
     Active Substance: ESCITALOPRAM OXALATE
  4. EUTHYROX [Concomitant]
     Active Substance: LEVOTHYROXINE SODIUM
  5. VITAMIN D [Concomitant]
     Active Substance: VITAMIN D NOS
  6. CALCIUM CARBONATE [Concomitant]
     Active Substance: CALCIUM CARBONATE

REACTIONS (9)
  - Spinal fracture [Unknown]
  - Papillary thyroid cancer [Unknown]
  - Hypersensitivity [Unknown]
  - Photodermatosis [Unknown]
  - Tooth disorder [Unknown]
  - Pruritus [Unknown]
  - Wrist fracture [Unknown]
  - Food intolerance [Unknown]
  - Bone density abnormal [Unknown]

NARRATIVE: CASE EVENT DATE: 20160101
